FAERS Safety Report 25804947 (Version 1)
Quarter: 2025Q3

REPORT INFORMATION
  Report Type: Spontaneous
  Country: GB (occurrence: GB)
  Receive Date: 20250916
  Receipt Date: 20250916
  Transmission Date: 20251021
  Serious: Yes (Other)
  Sender: DEXCEL LTD.
  Company Number: None

PATIENT
  Age: 31 Year
  Sex: Female
  Weight: 73 kg

DRUGS (3)
  1. FOLIC ACID [Concomitant]
     Active Substance: FOLIC ACID
     Indication: Vitamin supplementation
  2. OMEPRAZOLE [Suspect]
     Active Substance: OMEPRAZOLE
  3. Peptac Aniseed Liquid [Concomitant]
     Indication: Gastrooesophageal reflux disease

REACTIONS (5)
  - Medication error [Unknown]
  - Maternal exposure during pregnancy [Unknown]
  - Maternal exposure during breast feeding [Unknown]
  - Incorrect product administration duration [Unknown]
  - Drug ineffective [Unknown]
